FAERS Safety Report 7243013-7 (Version None)
Quarter: 2011Q1

REPORT INFORMATION
  Report Type: 
  Country: None (occurrence: None)
  Receive Date: 20110125
  Receipt Date: 20100902
  Transmission Date: 20110831
  Serious: No
  Sender: FDA-Public Use
  Company Number: US-AMGEN-KDL432900

PATIENT
  Age: 86 Year
  Sex: Female
  Weight: 60.8 kg

DRUGS (24)
  1. CALCIUM CARBONATE [Concomitant]
     Dosage: UNK UNK, QD
     Dates: start: 20100203
  2. ERGOCALCIFEROL [Concomitant]
     Dosage: 50000 IU, QWK
     Route: 048
     Dates: start: 20100203
  3. BISACODYL [Concomitant]
     Dosage: 10 MG, UNK
     Route: 054
     Dates: start: 20100203
  4. LIDODERM [Concomitant]
     Dosage: UNK UNK, UNK
     Dates: start: 20100203
  5. CLONAZEPAM [Concomitant]
     Dosage: .125 MG, BID
     Dates: start: 20100203
  6. GABAPENTIN [Concomitant]
     Dosage: 300 MG, TID
     Dates: start: 20100203
  7. GLIPIZIDE [Concomitant]
     Dosage: 5 MG, BID
     Route: 048
     Dates: start: 20100203
  8. FUROSEMIDE [Concomitant]
     Dosage: 20 MG, QD
     Route: 048
  9. DULOXETINE [Concomitant]
     Dosage: 20 MG, QD
     Route: 048
     Dates: start: 20100203
  10. AMLODIPINE [Concomitant]
     Dosage: 10 MG, QD
     Route: 048
     Dates: start: 20100203
  11. FENTANYL [Concomitant]
     Dosage: UNK UNK, 2 TIMES/WK
  12. PROLIA [Suspect]
     Indication: PRODUCT USED FOR UNKNOWN INDICATION
     Dosage: 60 MG, UNK
     Route: 058
     Dates: start: 20100616
  13. SERTRALINE HYDROCHLORIDE [Concomitant]
     Dosage: UNK UNK, UNK
  14. WARFARIN SODIUM [Concomitant]
     Dosage: 5 MG, UNK
     Route: 048
     Dates: start: 20100203
  15. FISH OIL [Concomitant]
     Dosage: 1000 MG, QD
     Route: 048
     Dates: start: 20100203
  16. LEVOTHYROXINE SODIUM [Concomitant]
     Dosage: 50 A?G, QD
     Route: 048
     Dates: start: 20100203
  17. ACTONEL [Concomitant]
     Dosage: UNK UNK, UNK
  18. ATENOLOL [Concomitant]
     Dosage: 10 MG, QD
     Route: 048
     Dates: start: 20100203
  19. TOBRAMYCIN SULFATE [Concomitant]
     Dosage: UNK UNK, UNK
     Dates: start: 20100203
  20. ATORVASTATIN CALCIUM [Concomitant]
     Dosage: 40 MG, QD
     Route: 048
     Dates: start: 20100203
  21. CALCIUM [Concomitant]
     Dosage: UNK UNK, UNK
  22. UNSPECIFIED STEROIDS [Concomitant]
     Dosage: UNK UNK, UNK
  23. LOTEPREDNOL ETABONATE [Concomitant]
     Dosage: .5 %, UNK
  24. ACETAMINOPHEN AND HYDROCODONE BITARTRATE [Concomitant]
     Dosage: UNK UNK, UNK
     Dates: start: 20100203

REACTIONS (4)
  - CELLULITIS [None]
  - FEELING HOT [None]
  - OEDEMA PERIPHERAL [None]
  - ERYTHEMA [None]
